FAERS Safety Report 6859382-3 (Version None)
Quarter: 2010Q3

REPORT INFORMATION
  Report Type: 
  Country: None (occurrence: None)
  Receive Date: 20100719
  Receipt Date: 20080412
  Transmission Date: 20110219
  Serious: No
  Sender: FDA-Public Use
  Company Number: US-PFIZER INC-2008017754

PATIENT
  Sex: Male
  Weight: 81.2 kg

DRUGS (10)
  1. CHANTIX [Suspect]
     Indication: SMOKING CESSATION THERAPY
     Dates: start: 20080131, end: 20080322
  2. CHANTIX [Suspect]
     Indication: CORONARY ARTERY DISEASE
  3. LIPITOR [Concomitant]
  4. METOPROLOL [Concomitant]
  5. LISINOPRIL [Concomitant]
  6. PLAVIX [Concomitant]
  7. XANAX [Concomitant]
  8. DIGITOXIN [Concomitant]
  9. AMBIEN [Concomitant]
  10. ACETYLSALICYLIC ACID [Concomitant]

REACTIONS (2)
  - DRUG INEFFECTIVE [None]
  - WEIGHT INCREASED [None]
